FAERS Safety Report 12399871 (Version 1)
Quarter: 2016Q2

REPORT INFORMATION
  Report Type: Spontaneous
  Country: US (occurrence: US)
  Receive Date: 20160524
  Receipt Date: 20160524
  Transmission Date: 20160815
  Serious: Yes (Other)
  Sender: FDA-Public Use
  Company Number: US-ENDO PHARMACEUTICALS INC.-2015-000114

PATIENT
  Age: 8 Year
  Sex: Female
  Weight: 30 kg

DRUGS (2)
  1. SUPPRELIN LA [Suspect]
     Active Substance: HISTRELIN ACETATE
     Indication: PRECOCIOUS PUBERTY
     Route: 058
     Dates: start: 20150209, end: 20150313
  2. SUPPRELIN LA [Suspect]
     Active Substance: HISTRELIN ACETATE
     Route: 058
     Dates: start: 20150313

REACTIONS (5)
  - Implant site bruising [Unknown]
  - Implant site induration [Not Recovered/Not Resolved]
  - Device expulsion [Recovered/Resolved]
  - Implant site erosion [Not Recovered/Not Resolved]
  - Implant site vesicles [Not Recovered/Not Resolved]

NARRATIVE: CASE EVENT DATE: 2015
